FAERS Safety Report 10012724 (Version 3)
Quarter: 2014Q1

REPORT INFORMATION
  Report Type: Spontaneous
  Country: JP (occurrence: JP)
  Receive Date: 20140314
  Receipt Date: 20140326
  Transmission Date: 20141002
  Serious: Yes (Death)
  Sender: FDA-Public Use
  Company Number: JP-CELGENEUS-087-21660-14031154

PATIENT
  Age: 66 Year
  Sex: Female
  Weight: 54 kg

DRUGS (11)
  1. ABRAXANE [Suspect]
     Indication: BREAST CANCER METASTATIC
     Dosage: 396 MILLIGRAM
     Route: 041
     Dates: start: 20140217, end: 20140217
  2. NEU-UP [Concomitant]
     Indication: PRODUCT USED FOR UNKNOWN INDICATION
     Dates: start: 20140224
  3. ZOMETA [Concomitant]
     Indication: BREAST CANCER METASTATIC
     Route: 041
  4. DECADRON [Concomitant]
     Indication: PRODUCT USED FOR UNKNOWN INDICATION
     Route: 065
  5. LOXONIN [Concomitant]
     Indication: PAIN
     Dosage: 180 MILLIGRAM
     Route: 065
     Dates: start: 20140210, end: 20140222
  6. LOXONIN [Concomitant]
     Dosage: 100 MILLIGRAM
     Route: 061
     Dates: start: 20140217
  7. MUCOSTA [Concomitant]
     Indication: PRODUCT USED FOR UNKNOWN INDICATION
     Dosage: 300 MILLIGRAM
     Route: 048
     Dates: start: 20140210, end: 20140223
  8. HOCHUEKKITO [Concomitant]
     Indication: POSTOPERATIVE CARE
     Dosage: 7.5 GRAM
     Route: 048
     Dates: start: 20140213, end: 20140222
  9. CALONAL [Concomitant]
     Indication: PAIN
     Dosage: 1600 MILLIGRAM
     Route: 048
     Dates: start: 20140214, end: 20140224
  10. CRAVIT [Concomitant]
     Indication: PYREXIA
     Route: 048
  11. NI [Concomitant]
     Indication: PRODUCT USED FOR UNKNOWN INDICATION
     Dosage: 7.5 MILLIGRAM
     Route: 048
     Dates: start: 20140213, end: 20140222

REACTIONS (1)
  - Leukopenia [Fatal]
